FAERS Safety Report 21227225 (Version 1)
Quarter: 2022Q3

REPORT INFORMATION
  Report Type: Spontaneous
  Country: US (occurrence: None)
  Receive Date: 20220817
  Receipt Date: 20220817
  Transmission Date: 20221026
  Serious: No
  Sender: FDA-Public Use
  Company Number: None

PATIENT
  Age: 26 Year
  Sex: Female
  Weight: 94.5 kg

DRUGS (7)
  1. BUPROPION HYDROCHLORIDE [Suspect]
     Active Substance: BUPROPION HYDROCHLORIDE
     Indication: Anxiety
     Dosage: OTHER QUANTITY : 90 TABLET(S);?FREQUENCY : DAILY;?
     Route: 048
     Dates: start: 20200801
  2. BUPROPION HYDROCHLORIDE [Suspect]
     Active Substance: BUPROPION HYDROCHLORIDE
     Indication: Depression
  3. BUPROPION HYDROCHLORIDE [Suspect]
     Active Substance: BUPROPION HYDROCHLORIDE
     Indication: Depression
  4. LAMOTRIGINE [Concomitant]
     Active Substance: LAMOTRIGINE
  5. BUPROPION [Concomitant]
     Active Substance: BUPROPION
  6. QSYMIA [Concomitant]
     Active Substance: PHENTERMINE HYDROCHLORIDE\TOPIRAMATE
  7. vitamin d 10000 units [Concomitant]

REACTIONS (5)
  - Epigastric discomfort [None]
  - Nausea [None]
  - Diarrhoea [None]
  - Frequent bowel movements [None]
  - Abdominal pain upper [None]

NARRATIVE: CASE EVENT DATE: 20220801
